FAERS Safety Report 23869300 (Version 2)
Quarter: 2024Q3

REPORT INFORMATION
  Report Type: Spontaneous
  Country: US (occurrence: US)
  Receive Date: 20240517
  Receipt Date: 20240801
  Transmission Date: 20241016
  Serious: No
  Sender: CALLIDITAS THERAPEUTICS
  Company Number: US-Calliditas-2024CAL00716

PATIENT
  Age: 42 Year
  Sex: Male
  Weight: 140.7 kg

DRUGS (1)
  1. TARPEYO [Suspect]
     Active Substance: BUDESONIDE
     Indication: Haematuria
     Route: 048
     Dates: start: 20240208

REACTIONS (7)
  - Peripheral swelling [Not Recovered/Not Resolved]
  - Rash [Unknown]
  - Product dose omission issue [Recovered/Resolved]
  - Prescribed underdose [Unknown]
  - Urticaria [Unknown]
  - Weight decreased [Unknown]
  - Illness [Unknown]
